FAERS Safety Report 4528010-4 (Version None)
Quarter: 2004Q4

REPORT INFORMATION
  Report Type: 
  Country: None (occurrence: None)
  Receive Date: 20041123
  Receipt Date: 20040402
  Transmission Date: 20050328
  Serious: Yes (Hospitalization, Other)
  Sender: FDA-Public Use
  Company Number: 2004017051

PATIENT
  Sex: Male

DRUGS (5)
  1. LIPITOR [Suspect]
     Indication: TYPE IIA HYPERLIPIDAEMIA
     Dosage: 20 MG (DAILY), ORAL
     Route: 048
     Dates: start: 20030101, end: 20040218
  2. LEVOTHYROXINE SODIUM [Concomitant]
  3. LISINOPRIL [Concomitant]
  4. OMEPRAZOLE [Concomitant]
  5. MOEXIPRIL HYDROCHLORIDE (MOEXIPRIL HYDROCHLORIDE) [Concomitant]

REACTIONS (10)
  - BLOOD THYROID STIMULATING HORMONE INCREASED [None]
  - ELECTROCARDIOGRAM Q WAVES [None]
  - ELECTROCARDIOGRAM ST-T CHANGE [None]
  - ESSENTIAL HYPERTENSION [None]
  - MYALGIA [None]
  - MYOGLOBINURIA [None]
  - PAIN [None]
  - RHABDOMYOLYSIS [None]
  - SYNCOPE VASOVAGAL [None]
  - URINE OUTPUT INCREASED [None]
